FAERS Safety Report 16404060 (Version 1)
Quarter: 2019Q2

REPORT INFORMATION
  Report Type: Report from Study
  Country: MX (occurrence: MX)
  Receive Date: 20190607
  Receipt Date: 20190607
  Transmission Date: 20190711
  Serious: Yes (Other)
  Sender: FDA-Public Use
  Company Number: MX-B.I. PHARMACEUTICALS,INC./RIDGEFIELD-2019-BI-020896

PATIENT
  Sex: Female

DRUGS (1)
  1. JARDIANZ DUO [Suspect]
     Active Substance: EMPAGLIFLOZIN\METFORMIN HYDROCHLORIDE
     Indication: TYPE 2 DIABETES MELLITUS
     Dosage: DAILY DOSE: 1
     Route: 065
     Dates: start: 20190426

REACTIONS (6)
  - Apparent death [Unknown]
  - Asthenia [Unknown]
  - Hepatitis [Unknown]
  - Liver disorder [Unknown]
  - Blood glucose decreased [Unknown]
  - Ocular icterus [Unknown]
